FAERS Safety Report 9178675 (Version 1)
Quarter: 2013Q1

REPORT INFORMATION
  Report Type: Spontaneous
  Country: US (occurrence: US)
  Receive Date: 20130321
  Receipt Date: 20130321
  Transmission Date: 20140127
  Serious: No
  Sender: FDA-Public Use
  Company Number: US-BAYER-2013-034478

PATIENT
  Age: 56 Year
  Sex: Female

DRUGS (3)
  1. BRONKAID [Suspect]
     Indication: ASTHMA
     Dosage: 1 DF, QID
     Route: 048
     Dates: start: 1988, end: 1993
  2. ALEVE CAPLET [Suspect]
     Dosage: 1 DF,QD
     Route: 048
     Dates: start: 2004
  3. PRIMITINE [Concomitant]

REACTIONS (3)
  - Sleep disorder [Recovered/Resolved]
  - Incorrect drug administration duration [None]
  - Incorrect drug administration duration [None]
